FAERS Safety Report 4432220-4 (Version None)
Quarter: 2004Q3

REPORT INFORMATION
  Report Type: 
  Country: None (occurrence: None)
  Receive Date: 20040825
  Receipt Date: 20040810
  Transmission Date: 20050211
  Serious: Yes (Other)
  Sender: FDA-Public Use
  Company Number: IE-ROCHE-377532

PATIENT
  Age: 43 Year
  Sex: Female

DRUGS (3)
  1. PEGASYS [Suspect]
     Indication: HEPATITIS C
     Route: 065
  2. METHADONE HCL [Concomitant]
     Dosage: TAKEN DAILY.
     Route: 048
  3. ACETAMINOPHEN [Concomitant]
     Dosage: AS REQUIRED.
     Route: 048

REACTIONS (5)
  - ARTHRITIS [None]
  - FLUID RETENTION [None]
  - INFLAMMATION [None]
  - JOINT EFFUSION [None]
  - JOINT SWELLING [None]
